FAERS Safety Report 19955661 (Version 2)
Quarter: 2022Q1

REPORT INFORMATION
  Report Type: Spontaneous
  Country: US (occurrence: None)
  Receive Date: 20211013
  Receipt Date: 20220116
  Transmission Date: 20220424
  Serious: Yes (Hospitalization)
  Sender: FDA-Public Use
  Company Number: US-MDD US OPERATIONS-MDD202106-001100

PATIENT
  Age: 52 Year
  Sex: Male

DRUGS (6)
  1. APOKYN [Suspect]
     Active Substance: APOMORPHINE HYDROCHLORIDE
     Indication: Parkinson^s disease
     Route: 058
     Dates: start: 20190814
  2. CARVEDILOL [Concomitant]
     Active Substance: CARVEDILOL
     Dosage: NOT PROVIDED
  3. CORLANOR [Concomitant]
     Active Substance: IVABRADINE HYDROCHLORIDE
     Dosage: NOT PROVIDED
  4. SINEMET [Concomitant]
     Active Substance: CARBIDOPA\LEVODOPA
     Dosage: NOT PROVIDED
  5. ADDERALL [Concomitant]
     Active Substance: AMPHETAMINE ASPARTATE\AMPHETAMINE SULFATE\DEXTROAMPHETAMINE SACCHARATE\DEXTROAMPHETAMINE SULFATE
     Dosage: NOT PROVIDED
  6. NOVOLOG [Concomitant]
     Active Substance: INSULIN ASPART
     Dosage: NOT PROVIDED

REACTIONS (4)
  - Feeding disorder [Unknown]
  - Weight decreased [Unknown]
  - Somnolence [Unknown]
  - Somnolence [Unknown]

NARRATIVE: CASE EVENT DATE: 20210901
